FAERS Safety Report 5672978-X (Version None)
Quarter: 2008Q1

REPORT INFORMATION
  Report Type: 
  Country: None (occurrence: None)
  Receive Date: 20080319
  Receipt Date: 20071031
  Transmission Date: 20080703
  Serious: No
  Sender: FDA-Public Use
  Company Number: US-ASTRAZENECA-2007UW25357

PATIENT
  Age: 75 Year
  Sex: Female

DRUGS (2)
  1. SYMBICORT [Suspect]
     Dosage: 160/4.5
     Route: 055
  2. ALBUTEROL [Concomitant]

REACTIONS (1)
  - ORAL DISCOMFORT [None]
